FAERS Safety Report 18205927 (Version 5)
Quarter: 2020Q4

REPORT INFORMATION
  Report Type: Report from Study
  Country: US (occurrence: US)
  Receive Date: 20200828
  Receipt Date: 20201216
  Transmission Date: 20210113
  Serious: Yes (Hospitalization)
  Sender: FDA-Public Use
  Company Number: US-ROCHE-2651383

PATIENT
  Age: 82 Year
  Sex: Female
  Weight: 87.1 kg

DRUGS (8)
  1. FLAGYL [Suspect]
     Active Substance: METRONIDAZOLE\METRONIDAZOLE HYDROCHLORIDE
     Indication: WOUND INFECTION
     Route: 048
     Dates: start: 20200821, end: 20200901
  2. XARELTO [Concomitant]
     Active Substance: RIVAROXABAN
     Indication: EMBOLISM VENOUS
     Route: 048
     Dates: start: 20200713
  3. BEVACIZUMAB. [Suspect]
     Active Substance: BEVACIZUMAB
     Indication: TRANSITIONAL CELL CARCINOMA
     Dosage: LAST DOSE PRIOR TO EVENT ONSET WAS RECEIVED ON 26/JUN/2020 (1300 MG)?LAST DOSE PRIOR TO SECOND OCCUR
     Route: 042
     Dates: start: 20200320, end: 20200914
  4. SALINE [Concomitant]
     Active Substance: SODIUM CHLORIDE
     Indication: DIZZINESS
  5. FLANAX CAPS [Concomitant]
     Active Substance: NAPROXEN
     Indication: POLLAKIURIA
     Route: 048
     Dates: start: 20200717
  6. SALINE [Concomitant]
     Active Substance: SODIUM CHLORIDE
     Indication: DIZZINESS
  7. KENALOG [Concomitant]
     Active Substance: TRIAMCINOLONE ACETONIDE
     Dates: start: 20200731, end: 20200731
  8. ATEZOLIZUMAB. [Suspect]
     Active Substance: ATEZOLIZUMAB
     Indication: TRANSITIONAL CELL CARCINOMA
     Dosage: LAST DOSE PRIOR TO EVENT (UTI) ONSET WAS RECEIVED ON 26/JUL/2020?LAST DOSE PRIOR TO SECOND OCCURRENC
     Route: 042
     Dates: start: 20200320, end: 20200914

REACTIONS (8)
  - Urinary tract infection [Recovered/Resolved]
  - Soft tissue infection [Not Recovered/Not Resolved]
  - Hip surgery [Recovered/Resolved]
  - Urinary tract infection [Recovered/Resolved]
  - Haematuria [Recovered/Resolved]
  - Arthralgia [Recovered/Resolved with Sequelae]
  - Nausea [Recovered/Resolved]
  - Urinary tract disorder [Recovering/Resolving]

NARRATIVE: CASE EVENT DATE: 20200708
